FAERS Safety Report 9707094 (Version 2)
Quarter: 2013Q4

REPORT INFORMATION
  Report Type: Spontaneous
  Country: US (occurrence: US)
  Receive Date: 20131125
  Receipt Date: 20131206
  Transmission Date: 20140711
  Serious: No
  Sender: FDA-Public Use
  Company Number: US-PFIZER INC-2013336332

PATIENT
  Age: 31 Year
  Sex: Female
  Weight: 65.76 kg

DRUGS (5)
  1. CHANTIX [Suspect]
     Indication: SMOKING CESSATION THERAPY
     Dosage: 0.5 MG, DAILY
     Dates: start: 201311, end: 201311
  2. CHANTIX [Suspect]
     Dosage: 1 MG, 2X/DAY
     Dates: start: 201311
  3. BUSPIRONE [Concomitant]
     Indication: ANXIETY
     Dosage: 100 MG, 1X/DAY
  4. LYRICA [Concomitant]
     Indication: NEURALGIA
     Dosage: 100 MG, DAILY
  5. ALBUTEROL [Concomitant]
     Indication: ASTHMA
     Dosage: 1 PUFF AS NEEDED

REACTIONS (1)
  - Nausea [Unknown]
